FAERS Safety Report 24091231 (Version 1)
Quarter: 2024Q3

REPORT INFORMATION
  Report Type: Spontaneous
  Country: BE (occurrence: BE)
  Receive Date: 20240715
  Receipt Date: 20240715
  Transmission Date: 20241017
  Serious: Yes (Death)
  Sender: PFIZER
  Company Number: BE-PFIZER INC-202400213405

PATIENT
  Sex: Male

DRUGS (1)
  1. INLYTA [Suspect]
     Active Substance: AXITINIB
     Indication: Sarcoma

REACTIONS (2)
  - Accident [Fatal]
  - Off label use [Unknown]
